FAERS Safety Report 6061040-2 (Version None)
Quarter: 2009Q1

REPORT INFORMATION
  Report Type: 
  Country: None (occurrence: None)
  Receive Date: 20090129
  Receipt Date: 20090129
  Transmission Date: 20090719
  Serious: Yes (Life-Threatening)
  Sender: FDA-Public Use
  Company Number: None

PATIENT
  Age: 32 Year
  Sex: Male
  Weight: 81.6475 kg

DRUGS (1)
  1. CLONAZEPAM [Suspect]
     Route: 048
     Dates: start: 20090127, end: 20090128

REACTIONS (3)
  - DRUG INEFFECTIVE [None]
  - HOMICIDAL IDEATION [None]
  - SUICIDAL IDEATION [None]
